FAERS Safety Report 8840763 (Version 2)
Quarter: 2015Q3

REPORT INFORMATION
  Report Type: Report from Study
  Country: US (occurrence: US)
  Receive Date: 20121015
  Receipt Date: 20150817
  Transmission Date: 20151125
  Serious: Yes (Other)
  Sender: FDA-Public Use
  Company Number: US-ROCHE-1140405

PATIENT
  Sex: Male
  Weight: 53.35 kg

DRUGS (6)
  1. CORTEF [Concomitant]
     Active Substance: HYDROCORTISONE
     Dosage: EVENING
     Route: 065
  2. NUTROPIN AQ [Suspect]
     Active Substance: SOMATROPIN
     Indication: HYPOPITUITARISM
     Route: 058
     Dates: start: 19990324
  3. NUTROPIN AQ [Suspect]
     Active Substance: SOMATROPIN
     Dosage: EVERY NIGHT
     Route: 058
  4. NUTROPIN AQ [Suspect]
     Active Substance: SOMATROPIN
     Route: 058
  5. CORTEF [Concomitant]
     Active Substance: HYDROCORTISONE
     Dosage: MORNING
     Route: 065
  6. SYNTHROID [Concomitant]
     Active Substance: LEVOTHYROXINE SODIUM
     Route: 065

REACTIONS (5)
  - Nocturia [Unknown]
  - Dry skin [Unknown]
  - Injection site pain [Unknown]
  - Cerebrospinal fluid leakage [Unknown]
  - Influenza [Unknown]
